FAERS Safety Report 7301754-7 (Version None)
Quarter: 2011Q1

REPORT INFORMATION
  Report Type: 
  Country: None (occurrence: None)
  Receive Date: 20110218
  Receipt Date: 20110208
  Transmission Date: 20110831
  Serious: Yes (Congenital Anomaly)
  Sender: FDA-Public Use
  Company Number: A0885985A

PATIENT
  Sex: Female
  Weight: 1.7 kg

DRUGS (14)
  1. VITAMIN D [Concomitant]
     Route: 064
  2. SUSTIVA [Suspect]
     Indication: ANTIVIRAL TREATMENT
     Route: 064
     Dates: end: 20091001
  3. CELESTONE [Concomitant]
     Route: 064
  4. REYATAZ [Suspect]
     Indication: ANTIVIRAL TREATMENT
     Route: 064
     Dates: start: 20091119
  5. NORVIR [Suspect]
     Indication: ANTIVIRAL TREATMENT
     Route: 064
     Dates: start: 20091119
  6. HIV ANTIVIRAL AGENTS UNSPECIFIED [Concomitant]
     Indication: ANTIVIRAL TREATMENT
     Route: 064
     Dates: start: 20100406, end: 20100406
  7. CONCURRENT MEDICATIONS [Concomitant]
     Route: 064
  8. ZIAGEN [Suspect]
     Route: 064
     Dates: start: 20091110
  9. VIREAD [Suspect]
     Indication: ANTIVIRAL TREATMENT
     Route: 064
     Dates: start: 20050101, end: 20091001
  10. SPASFON [Concomitant]
     Route: 064
  11. CLAMOXYL [Concomitant]
     Route: 064
  12. LOXEN [Concomitant]
     Route: 064
  13. ZIAGEN [Suspect]
     Indication: ANTIVIRAL TREATMENT
     Route: 064
     Dates: end: 20091001
  14. VIREAD [Suspect]
     Route: 064
     Dates: start: 20091119

REACTIONS (8)
  - DRUG EXPOSURE DURING PREGNANCY [None]
  - CONGENITAL PULMONARY VALVE ATRESIA [None]
  - VENTRICULAR HYPOPLASIA [None]
  - NEONATAL RESPIRATORY DISTRESS SYNDROME [None]
  - CONGENITAL TRICUSPID VALVE ATRESIA [None]
  - PREMATURE BABY [None]
  - SHORTENED CERVIX [None]
  - CARDIOMEGALY [None]
